FAERS Safety Report 8948481 (Version 2)
Quarter: 2013Q2

REPORT INFORMATION
  Report Type: Spontaneous
  Country: US (occurrence: US)
  Receive Date: 20121206
  Receipt Date: 20130402
  Transmission Date: 20140414
  Serious: Yes (Hospitalization)
  Sender: FDA-Public Use
  Company Number: US-BAYER-2012-127358

PATIENT
  Age: 46 Year
  Sex: Female

DRUGS (8)
  1. YAZ [Suspect]
  2. YASMIN [Suspect]
  3. OCELLA [Suspect]
  4. GIANVI [Suspect]
  5. TOPIRAMATE [Concomitant]
  6. PERCOCET [Concomitant]
     Dosage: 5/325MG
  7. OXYCODONE [Concomitant]
  8. DIAMOX [Concomitant]
     Dosage: 500 MG,  BID

REACTIONS (5)
  - Intracranial venous sinus thrombosis [Recovered/Resolved]
  - Jugular vein thrombosis [Recovered/Resolved]
  - Injury [Recovered/Resolved]
  - Pain [None]
  - Pain [Recovered/Resolved]
